FAERS Safety Report 9116960 (Version 1)
Quarter: 2013Q1

REPORT INFORMATION
  Report Type: Spontaneous
  Country: US (occurrence: US)
  Receive Date: 20130225
  Receipt Date: 20130225
  Transmission Date: 20140127
  Serious: Yes (Hospitalization)
  Sender: FDA-Public Use
  Company Number: US-BAYER-2013-021759

PATIENT
  Age: 29 Year
  Sex: Female
  Weight: 92 kg

DRUGS (4)
  1. GIANVI [Suspect]
  2. YAZ [Suspect]
     Indication: DYSFUNCTIONAL UTERINE BLEEDING
  3. IRON SUPPLEMENT [Concomitant]
  4. IRON SULFATE [Concomitant]

REACTIONS (1)
  - Pulmonary embolism [Recovered/Resolved]
